FAERS Safety Report 8126000-6 (Version None)
Quarter: 2012Q1

REPORT INFORMATION
  Report Type: 
  Country: None (occurrence: None)
  Receive Date: 20120209
  Receipt Date: 20120127
  Transmission Date: 20120608
  Serious: Yes (Other)
  Sender: FDA-Public Use
  Company Number: ES-ROCHE-1034959

PATIENT
  Age: 78 Year
  Sex: Male

DRUGS (3)
  1. ENALAPRIL MALEATE [Concomitant]
     Indication: HYPERTENSION
  2. AVASTIN [Suspect]
     Indication: RETINAL VASCULAR THROMBOSIS
     Route: 031
     Dates: start: 20111212, end: 20111212
  3. AVASTIN [Suspect]
     Route: 031

REACTIONS (4)
  - LOSS OF CONSCIOUSNESS [None]
  - OEDEMA PERIPHERAL [None]
  - MUSCULAR WEAKNESS [None]
  - MYALGIA [None]
